FAERS Safety Report 10254953 (Version 1)
Quarter: 2014Q2

REPORT INFORMATION
  Report Type: Spontaneous
  Country: US (occurrence: None)
  Receive Date: 20140620
  Receipt Date: 20140620
  Transmission Date: 20141212
  Serious: Yes (Other)
  Sender: FDA-Public Use
  Company Number: None

PATIENT
  Age: 34 Year
  Sex: Female
  Weight: 59.88 kg

DRUGS (1)
  1. BIOFREEZE [Suspect]
     Indication: BACK PAIN
     Dosage: 3ML, TWICE DAILY, APPLIED TO A SURFACE, USUALLY THE SKIN?
     Dates: start: 20140616, end: 20140618

REACTIONS (1)
  - Urticaria [None]
